FAERS Safety Report 10152048 (Version 1)
Quarter: 2014Q2

REPORT INFORMATION
  Report Type: Spontaneous
  Country: GB (occurrence: GB)
  Receive Date: 20140505
  Receipt Date: 20140505
  Transmission Date: 20141212
  Serious: Yes (Other)
  Sender: FDA-Public Use
  Company Number: GB-TARO PHARMACEUTICALS U.S.A., INC-2014SUN00957

PATIENT
  Age: 2 Year
  Sex: 0

DRUGS (1)
  1. CARBAMAZEPINE 100 MG/5 ML ORAL SUSPENSION [Suspect]
     Indication: PRODUCT USED FOR UNKNOWN INDICATION
     Dosage: UNK
     Route: 048

REACTIONS (3)
  - Expired product administered [Unknown]
  - Convulsion [Unknown]
  - Drug ineffective [Unknown]
